FAERS Safety Report 6334969-5 (Version None)
Quarter: 2009Q3

REPORT INFORMATION
  Report Type: 
  Country: None (occurrence: None)
  Receive Date: 20090831
  Receipt Date: 20090812
  Transmission Date: 20100115
  Serious: No
  Sender: FDA-Public Use
  Company Number: US-BAYER-200930215NA

PATIENT
  Age: 61 Year
  Sex: Female
  Weight: 64 kg

DRUGS (18)
  1. ULTRAVIST 370 [Suspect]
     Indication: COMPUTERISED TOMOGRAM ABDOMEN
     Dosage: TOTAL DAILY DOSE: 80 ML  UNIT DOSE: 500 ML
     Route: 042
     Dates: start: 20090812, end: 20090812
  2. ULTRAVIST 370 [Suspect]
     Route: 048
     Dates: start: 20090812, end: 20090812
  3. COMBIVENT [Concomitant]
  4. ALLEGRA [Concomitant]
     Dosage: TOTAL DAILY DOSE: 180 MG
  5. SINGULAIR [Concomitant]
     Dosage: TOTAL DAILY DOSE: 10 MG
  6. COREG [Concomitant]
     Dosage: TOTAL DAILY DOSE: 25 MG
  7. LUNESTA [Concomitant]
     Dosage: TOTAL DAILY DOSE: 2  MG
  8. NEXIUM [Concomitant]
     Dosage: TOTAL DAILY DOSE: 40 MG
  9. LASIX [Concomitant]
     Dosage: AS USED: 20 MG
  10. LANOXIN [Concomitant]
     Dosage: TOTAL DAILY DOSE: 0.25 MG
  11. HYDROCHLOROTHIAZIDE [Concomitant]
     Dosage: TOTAL DAILY DOSE: 12.5 MG
  12. ADVAIR HFA [Concomitant]
     Dosage: 500/50
  13. CRESTOR [Concomitant]
     Dosage: TOTAL DAILY DOSE: 5 MG
  14. VENLAFAXINE HYDROCHLORIDE [Concomitant]
     Dosage: TOTAL DAILY DOSE: 100 MG
  15. NEVANAC [Concomitant]
     Dosage: 0.1% 1 DROP TWICE A DAY
  16. LOTEMAX [Concomitant]
     Dosage: 0.5% 1 DROP TWICE A DAY
  17. CALCIUM LACTATE [Concomitant]
     Dosage: ^3^ TWICE A DAY
  18. FISH OIL [Concomitant]
     Dosage: AS USED: 1000 MG

REACTIONS (1)
  - URTICARIA [None]
